FAERS Safety Report 4471332-6 (Version None)
Quarter: 2004Q3

REPORT INFORMATION
  Report Type: 
  Country: None (occurrence: None)
  Receive Date: 20040909
  Receipt Date: 20040603
  Transmission Date: 20050211
  Serious: Yes (Hospitalization)
  Sender: FDA-Public Use
  Company Number: F03200400046

PATIENT
  Age: 69 Year
  Sex: Male

DRUGS (11)
  1. ELOXATIN [Suspect]
     Indication: COLORECTAL CANCER
     Dosage: INTRAVENOUS NOS
     Route: 042
     Dates: start: 20040421, end: 20040421
  2. CETUXIMAB-SOLUTION [Suspect]
     Indication: COLORECTAL CANCER
     Dosage: INTRAVENOUS NOS
     Route: 042
     Dates: start: 20040421, end: 20040421
  3. FLUOROURACIL [Suspect]
     Indication: COLORECTAL CANCER
     Dosage: INTRAVENOUS NOS
     Route: 042
     Dates: start: 20040421, end: 20040421
  4. LEUCOVORIN SOLUTION [Suspect]
     Indication: COLORECTAL CANCER
     Dosage: INTRAVENOUS NOS
     Route: 042
     Dates: start: 20040421, end: 20040421
  5. HEPARIN FRACTION SODIUM SALT [Concomitant]
  6. FILGRASTIM [Concomitant]
  7. ACYCLOVIR [Concomitant]
  8. MINOCYCLINE HCL [Concomitant]
  9. LOPERAMIDE HCL [Concomitant]
  10. PRAZOSIN HCL [Concomitant]
  11. FLUOXETINE HYDROCHLROIDE [Concomitant]

REACTIONS (1)
  - DYSPNOEA [None]
